FAERS Safety Report 8443909-4 (Version None)
Quarter: 2012Q2

REPORT INFORMATION
  Report Type: 
  Country: None (occurrence: None)
  Receive Date: 20120618
  Receipt Date: 20120605
  Transmission Date: 20120825
  Serious: Yes (Hospitalization, Other)
  Sender: FDA-Public Use
  Company Number: US-BAYER-2012-055548

PATIENT
  Age: 27 Year
  Sex: Female
  Weight: 90.249 kg

DRUGS (17)
  1. VITAMIN D [Concomitant]
  2. COMPAZINE [Concomitant]
     Indication: NAUSEA
  3. TORADOL [Concomitant]
  4. MULTI-VITAMIN [Concomitant]
     Dosage: UNK UNK, QD
     Dates: start: 20091116
  5. COMPAZINE [Concomitant]
     Indication: VOMITING
  6. ANTIVERT [Concomitant]
     Indication: VERTIGO
     Dosage: 25 MG, UNK
  7. BENADRYL [Concomitant]
     Indication: VOMITING
  8. DROSPIRENONE AND ETHINYL ESTRADIOL [Suspect]
     Indication: CONTRACEPTION
     Dosage: UNK
     Dates: start: 20090506, end: 20091113
  9. KAPIDEX [Concomitant]
  10. HYDROCODONE BITARTRATE AND ACETAMINOPHEN [Concomitant]
     Dosage: 5-500 MG, UNK
  11. CALCIUM [Concomitant]
     Dosage: 600 MG + D 600-200MG
     Dates: start: 20091116
  12. OTHER ANALGESICS AND ANTIPYRETICS [Concomitant]
     Dosage: 1-2 TABS EVERY 8 HOURS PRN
     Dates: start: 20091121
  13. ATIVAN [Concomitant]
  14. ERYTHROMYCIN [Concomitant]
  15. LIPITOR [Concomitant]
     Indication: HYPERLIPIDAEMIA
     Dosage: 10 MG, UNK
     Dates: start: 20091118
  16. BENADRYL [Concomitant]
     Indication: NAUSEA
  17. AMOXICILLIN [Concomitant]
     Dosage: 500 MG, UNK

REACTIONS (13)
  - PARAESTHESIA [None]
  - PALPITATIONS [None]
  - ORTHOSTATIC INTOLERANCE [None]
  - CEREBROVASCULAR ACCIDENT [None]
  - VOMITING [None]
  - ANGINA PECTORIS [None]
  - HYPOAESTHESIA [None]
  - DYSPNOEA [None]
  - DIZZINESS [None]
  - ANXIETY [None]
  - CEREBRAL INFARCTION [None]
  - PAIN [None]
  - MENTAL DISORDER [None]
